FAERS Safety Report 15444707 (Version 2)
Quarter: 2018Q4

REPORT INFORMATION
  Report Type: Spontaneous
  Country: US (occurrence: US)
  Receive Date: 20180928
  Receipt Date: 20181217
  Transmission Date: 20190204
  Serious: Yes (Other)
  Sender: FDA-Public Use
  Company Number: US-SA-2018SA268382

PATIENT
  Age: 66 Year
  Sex: Female
  Weight: 91 kg

DRUGS (19)
  1. ZOMETA [Concomitant]
     Active Substance: ZOLEDRONIC ACID
  2. SODIUM CHLORIDE. [Concomitant]
     Active Substance: SODIUM CHLORIDE
  3. PHENERGAN [PROMETHAZINE HYDROCHLORIDE] [Concomitant]
  4. TRAZODONE [Concomitant]
     Active Substance: TRAZODONE HYDROCHLORIDE
  5. MOBIC [Concomitant]
     Active Substance: MELOXICAM
  6. OMEPRAZOLE. [Concomitant]
     Active Substance: OMEPRAZOLE
  7. TAXOTERE [Suspect]
     Active Substance: DOCETAXEL
     Indication: BREAST CANCER FEMALE
     Dosage: 117MG - 134MG, Q3W
     Route: 042
     Dates: start: 20090526, end: 20090526
  8. ANZEMET [Concomitant]
     Active Substance: DOLASETRON MESYLATE
  9. CRESTOR [Concomitant]
     Active Substance: ROSUVASTATIN CALCIUM
  10. EMEND [Concomitant]
     Active Substance: APREPITANT
  11. TAXOTERE [Suspect]
     Active Substance: DOCETAXEL
     Dosage: 117MG - 134MG,
     Route: 042
     Dates: start: 20090915, end: 20090915
  12. PARAPLATIN [Concomitant]
     Active Substance: CARBOPLATIN
  13. PALONOSETRON. [Concomitant]
     Active Substance: PALONOSETRON HYDROCHLORIDE
  14. PEGFILGRASTIM [Concomitant]
     Active Substance: PEGFILGRASTIM
  15. ATACAND [Concomitant]
     Active Substance: CANDESARTAN CILEXETIL
  16. HERCEPTIN [Concomitant]
     Active Substance: TRASTUZUMAB
  17. ALOXI [Concomitant]
     Active Substance: PALONOSETRON HYDROCHLORIDE
  18. CYMBALTA [Concomitant]
     Active Substance: DULOXETINE HYDROCHLORIDE
  19. TOPROL XL [Concomitant]
     Active Substance: METOPROLOL SUCCINATE

REACTIONS (2)
  - Psychological trauma [Unknown]
  - Alopecia [Not Recovered/Not Resolved]

NARRATIVE: CASE EVENT DATE: 20100315
